FAERS Safety Report 11842662 (Version 1)
Quarter: 2015Q4

REPORT INFORMATION
  Report Type: Spontaneous
  Country: US (occurrence: US)
  Receive Date: 20151216
  Receipt Date: 20151216
  Transmission Date: 20160305
  Serious: Yes (Death)
  Sender: FDA-Public Use
  Company Number: PHEH2015US026174

PATIENT
  Age: 81 Year
  Sex: Male

DRUGS (2)
  1. TAFINLAR [Suspect]
     Active Substance: DABRAFENIB MESYLATE
     Indication: METASTASIS
     Dosage: 75 MG, BID
     Route: 048
     Dates: start: 20140827, end: 20150619
  2. MEKINIST [Suspect]
     Active Substance: TRAMETINIB DIMETHYL SULFOXIDE
     Indication: METASTASIS
     Dosage: 0.5 MG, QD
     Route: 048
     Dates: start: 20140827, end: 20150619

REACTIONS (1)
  - Death [Fatal]

NARRATIVE: CASE EVENT DATE: 20150917
